FAERS Safety Report 8513967-7 (Version None)
Quarter: 2012Q3

REPORT INFORMATION
  Report Type: 
  Country: None (occurrence: None)
  Receive Date: 20120705
  Receipt Date: 20120629
  Transmission Date: 20120928
  Serious: Yes (Death)
  Sender: FDA-Public Use
  Company Number: DSA_58227_2012

PATIENT
  Sex: Male

DRUGS (6)
  1. HALOPERIDOL [Concomitant]
  2. CELEXA [Concomitant]
  3. IMODIUM A-D [Concomitant]
  4. XENAZINE [Suspect]
     Indication: PRODUCT USED FOR UNKNOWN INDICATION
     Dosage: (25 MG TID ORAL)
     Route: 048
     Dates: end: 20120519
  5. TRAZODONE HYDROCHLORIDE [Concomitant]
  6. VITAMINS NOS [Concomitant]

REACTIONS (1)
  - DEATH [None]
